FAERS Safety Report 23964982 (Version 1)
Quarter: 2024Q2

REPORT INFORMATION
  Report Type: Report from Study
  Country: US (occurrence: US)
  Receive Date: 20240612
  Receipt Date: 20240612
  Transmission Date: 20240715
  Serious: No
  Sender: FDA-Public Use
  Company Number: US-ACADIA PHARMACEUTICALS INC.-ACA-2024-PIM-002491

PATIENT
  Age: 80 Year
  Sex: Female

DRUGS (16)
  1. NUPLAZID [Suspect]
     Active Substance: PIMAVANSERIN TARTRATE
     Indication: Parkinson^s disease
     Dosage: 34 MILLIGRAM, QD
     Route: 048
     Dates: start: 20240424, end: 20240508
  2. VENLAFAXINE [Concomitant]
     Active Substance: VENLAFAXINE HYDROCHLORIDE
  3. OMEPRAZOLE [Concomitant]
     Active Substance: DONEPEZIL HYDROCHLORIDE\OMEPRAZOLE\OMEPRAZOLE MAGNESIUM
  4. PRAVASTATIN [Concomitant]
     Active Substance: PRAVASTATIN
  5. RIVASTIGMINE [Concomitant]
     Active Substance: RIVASTIGMINE
  6. ASPIRIN [Concomitant]
     Active Substance: ASPIRIN
  7. ELIQUIS [Concomitant]
     Active Substance: APIXABAN
  8. TYLENOL [Concomitant]
     Active Substance: ACETAMINOPHEN
  9. DORZOLAMIDE HYDROCHLORIDE\TIMOLOL MALEATE [Concomitant]
     Active Substance: DORZOLAMIDE HYDROCHLORIDE\TIMOLOL MALEATE
  10. PROLIA [Concomitant]
     Active Substance: DENOSUMAB
  11. METOPROLOL [Concomitant]
     Active Substance: METOPROLOL
  12. RYTARY [Concomitant]
     Active Substance: CARBIDOPA\LEVODOPA
  13. LEVOTHYROXINE [Concomitant]
     Active Substance: LEVOTHYROXINE\LEVOTHYROXINE SODIUM
  14. HYDROCHLOROTHIAZIDE [Concomitant]
     Active Substance: HYDROCHLOROTHIAZIDE
  15. VITAMIN B12 [Concomitant]
     Active Substance: CYANOCOBALAMIN
  16. MAGNESIUM [Concomitant]
     Active Substance: MAGNESIUM

REACTIONS (1)
  - Peripheral swelling [Recovered/Resolved]

NARRATIVE: CASE EVENT DATE: 20240425
